FAERS Safety Report 5293891-6 (Version None)
Quarter: 2007Q2

REPORT INFORMATION
  Report Type: 
  Country: None (occurrence: None)
  Receive Date: 20070411
  Receipt Date: 20070403
  Transmission Date: 20071010
  Serious: Yes (Death)
  Sender: FDA-Public Use
  Company Number: DZ-PFIZER INC-2007026017

PATIENT
  Age: 61 Year
  Sex: Male

DRUGS (2)
  1. CELEBREX [Suspect]
     Indication: CHEST PAIN
     Route: 048
     Dates: start: 20070311, end: 20070315
  2. DI-ANTALVIC [Suspect]
     Indication: CHEST PAIN
     Route: 048
     Dates: start: 20070311, end: 20070315

REACTIONS (1)
  - CARDIAC ARREST [None]
